FAERS Safety Report 6795165-0 (Version None)
Quarter: 2010Q2

REPORT INFORMATION
  Report Type: 
  Country: None (occurrence: None)
  Receive Date: 20100625
  Receipt Date: 20100625
  Transmission Date: 20101027
  Serious: Yes (Hospitalization)
  Sender: FDA-Public Use
  Company Number: PHHO2009FR01241

PATIENT
  Sex: Male
  Weight: 64 kg

DRUGS (3)
  1. AFINITOR [Suspect]
     Indication: PANCREATIC NEUROENDOCRINE TUMOUR
     Dosage: 10 MG DAILY
     Route: 048
     Dates: start: 20080808, end: 20080913
  2. AFINITOR [Suspect]
     Dosage: DOUBLE BLIND
     Route: 048
     Dates: start: 20081002, end: 20081228
  3. AFINITOR [Suspect]
     Dosage: DOUBLE BLIND
     Route: 048
     Dates: start: 20090106, end: 20090119

REACTIONS (3)
  - DISEASE PROGRESSION [None]
  - DRUG INEFFECTIVE [None]
  - PULMONARY EMBOLISM [None]
